FAERS Safety Report 6445471-4 (Version None)
Quarter: 2009Q4

REPORT INFORMATION
  Report Type: 
  Country: None (occurrence: None)
  Receive Date: 20091110
  Receipt Date: 20090805
  Transmission Date: 20100525
  Serious: No
  Sender: FDA-Public Use
  Company Number: 1000007971

PATIENT

DRUGS (1)
  1. SAVELLA [Suspect]

REACTIONS (1)
  - TREMOR [None]
